FAERS Safety Report 9159882 (Version 1)
Quarter: 2013Q1

REPORT INFORMATION
  Report Type: Spontaneous
  Country: US (occurrence: None)
  Receive Date: 20130219
  Receipt Date: 20130219
  Transmission Date: 20140127
  Serious: Yes (Life-Threatening, Other)
  Sender: FDA-Public Use
  Company Number: ACO_34152_2013

PATIENT
  Age: 40 Year
  Sex: Female
  Weight: 89.3 kg

DRUGS (6)
  1. AMPYRA (DALFAMPRIDINE) TABLET, 10MG [Suspect]
     Indication: GAIT DISTURBANCE
     Route: 048
     Dates: start: 20130108, end: 201301
  2. COPAXONE (GLATIRAMER ACETATE) [Concomitant]
  3. DEPLIN (CALCIUM LEVOMEFOLATE) [Concomitant]
  4. LAMICTAL (LAMOTRIGINE) TABLET [Concomitant]
  5. SYNTHROID (LEVOTHYROXINE SODIUM) [Concomitant]
  6. TIZANIDINE (TIZANIDINE HYDROCHLORIDE) [Concomitant]

REACTIONS (2)
  - Suicidal ideation [None]
  - Anger [None]
